FAERS Safety Report 9529881 (Version 2)
Quarter: 2013Q4

REPORT INFORMATION
  Report Type: Spontaneous
  Country: US (occurrence: US)
  Receive Date: 20130917
  Receipt Date: 20131212
  Transmission Date: 20140711
  Serious: No
  Sender: FDA-Public Use
  Company Number: US-PFIZER INC-2013262389

PATIENT
  Age: 55 Year
  Sex: Female

DRUGS (2)
  1. BOSULIF [Suspect]
     Indication: CHRONIC MYELOID LEUKAEMIA
     Dosage: 100 MG, UNK
     Dates: start: 20130903
  2. BOSULIF [Suspect]
     Dosage: 300 MG, DAILY (TAKE 3 TABLETS (100MG) DAILY)
     Dates: start: 201311

REACTIONS (3)
  - Chest pain [Unknown]
  - Arthralgia [Unknown]
  - Diarrhoea [Unknown]
